FAERS Safety Report 20888008 (Version 2)
Quarter: 2022Q3

REPORT INFORMATION
  Report Type: Spontaneous
  Country: US (occurrence: US)
  Receive Date: 20220529
  Receipt Date: 20220707
  Transmission Date: 20221026
  Serious: No
  Sender: FDA-Public Use
  Company Number: US-JNJFOC-20220555517

PATIENT
  Sex: Male

DRUGS (1)
  1. INFLIXIMAB\RECOMBINANT INTERLEUKIN-2 HUMAN [Suspect]
     Active Substance: ALDESLEUKIN\INFLIXIMAB
     Indication: Colitis ulcerative
     Dates: start: 2022

REACTIONS (3)
  - Drug ineffective [Unknown]
  - Diarrhoea [Unknown]
  - Decreased appetite [Unknown]

NARRATIVE: CASE EVENT DATE: 20220101
